FAERS Safety Report 22299060 (Version 2)
Quarter: 2023Q2

REPORT INFORMATION
  Report Type: Spontaneous
  Country: NP (occurrence: NP)
  Receive Date: 20230509
  Receipt Date: 20230623
  Transmission Date: 20230721
  Serious: Yes (Hospitalization, Other)
  Sender: FDA-Public Use
  Company Number: NP-TRIS PHARMA, INC.-23NP010860

PATIENT

DRUGS (1)
  1. MORPHINE SULFATE [Suspect]
     Active Substance: MORPHINE SULFATE
     Indication: Product used for unknown indication
     Dosage: UNK

REACTIONS (3)
  - Herpes simplex meningoencephalitis [Recovering/Resolving]
  - Drug abuse [Unknown]
  - Drug dependence [Recovering/Resolving]
